FAERS Safety Report 8644968 (Version 4)
Quarter: 2012Q4

REPORT INFORMATION
  Report Type: 
  Country: JP (occurrence: JP)
  Receive Date: 20120702
  Receipt Date: 20121102
  Transmission Date: 20130627
  Serious: Yes (Hospitalization)
  Sender: FDA-Public Use
  Company Number: JP-B.I. PHARMACEUTICALS,INC./RIDGEFIELD-2012-BP-14398NB

PATIENT
  Age: 85 Year
  Sex: Female
  Weight: 59.4 kg

DRUGS (3)
  1. PRAZAXA [Suspect]
     Indication: ATRIAL FIBRILLATION
     Dosage: 220 mg
     Route: 048
     Dates: start: 20111202, end: 20120311
  2. MICAMLO [Concomitant]
     Route: 065
     Dates: start: 20110928
  3. BAYASPIRIN [Concomitant]
     Dosage: 100 mg
     Route: 065
     Dates: start: 20010319

REACTIONS (1)
  - Cerebral infarction [Not Recovered/Not Resolved]
